FAERS Safety Report 23220492 (Version 1)
Quarter: 2023Q4

REPORT INFORMATION
  Report Type: Report from Study
  Country: US (occurrence: US)
  Receive Date: 20231123
  Receipt Date: 20231123
  Transmission Date: 20240110
  Serious: Yes (Hospitalization, Other)
  Sender: FDA-Public Use
  Company Number: US-ALXN-A202302080AA

PATIENT
  Sex: Female

DRUGS (2)
  1. ULTOMIRIS [Suspect]
     Active Substance: RAVULIZUMAB-CWVZ
     Indication: Paroxysmal nocturnal haemoglobinuria
     Dosage: 300 MG, UNK
     Route: 065
     Dates: start: 2016
  2. COVID-19 VACCINE NOS [Suspect]
     Active Substance: COVID-19 VACCINE NOS
     Indication: COVID-19 immunisation
     Dosage: UNK
     Route: 065

REACTIONS (17)
  - Haematuria [Unknown]
  - Transfusion [Not Recovered/Not Resolved]
  - Suspected COVID-19 [Unknown]
  - Alopecia [Unknown]
  - Dyspnoea [Unknown]
  - Gait disturbance [Unknown]
  - Off label use [Unknown]
  - Decreased appetite [Unknown]
  - Hypophagia [Unknown]
  - Illness [Unknown]
  - Stress [Unknown]
  - Post-traumatic stress disorder [Unknown]
  - Weight decreased [Unknown]
  - Eating disorder [Unknown]
  - Anxiety [Unknown]
  - Muscle spasms [Unknown]
  - Pyrexia [Unknown]

NARRATIVE: CASE EVENT DATE: 20200101
